FAERS Safety Report 14183925 (Version 1)
Quarter: 2017Q4

REPORT INFORMATION
  Report Type: Report from Study
  Country: US (occurrence: US)
  Receive Date: 20171113
  Receipt Date: 20171113
  Transmission Date: 20180321
  Serious: Yes (Other)
  Sender: FDA-Public Use
  Company Number: US-BAYER-2017-156490

PATIENT
  Age: 69 Year
  Sex: Male

DRUGS (19)
  1. METOPROLOL TARTRATE. [Concomitant]
     Active Substance: METOPROLOL TARTRATE
  2. DEXAMETHASON [Concomitant]
     Active Substance: DEXAMETHASONE
  3. IBUPROFEN. [Concomitant]
     Active Substance: IBUPROFEN
  4. AMOXICILLIN. [Concomitant]
     Active Substance: AMOXICILLIN
     Dosage: UNK
  5. BENAZEPRIL HYDROCHLORIDE. [Concomitant]
     Active Substance: BENAZEPRIL HYDROCHLORIDE
  6. AMOXICILLIN. [Concomitant]
     Active Substance: AMOXICILLIN
     Dosage: UNK
  7. HYDROCHLOROTHIAZID [Concomitant]
     Active Substance: HYDROCHLOROTHIAZIDE
  8. VICTOZA [Concomitant]
     Active Substance: LIRAGLUTIDE
  9. AZITHROMYCIN ANHYDROUS. [Concomitant]
     Active Substance: AZITHROMYCIN ANHYDROUS
  10. ONDANSETRON [Concomitant]
     Active Substance: ONDANSETRON
  11. GLIMEPIRIDE. [Concomitant]
     Active Substance: GLIMEPIRIDE
  12. STIVARGA [Suspect]
     Active Substance: REGORAFENIB
     Indication: COLON CANCER
     Dosage: 160MG DAILY FOR 21 DAYS, THEN 7 DAYS OFF. TAKE WITH LOW FAT BREAKFAST
     Route: 048
     Dates: start: 20170802, end: 2017
  13. APIXABAN [Concomitant]
     Active Substance: APIXABAN
  14. ESCITALOPRAM [Concomitant]
     Active Substance: ESCITALOPRAM OXALATE
  15. LOVASTATIN. [Concomitant]
     Active Substance: LOVASTATIN
  16. CHLORHEXIDINE [CHLORHEXIDINE] [Concomitant]
  17. HYDROCODONE [Concomitant]
     Active Substance: HYDROCODONE
  18. LOPERAMIDE HCL [Concomitant]
     Active Substance: LOPERAMIDE HYDROCHLORIDE
  19. PROCHLORPERAZINE. [Concomitant]
     Active Substance: PROCHLORPERAZINE

REACTIONS (7)
  - Colon cancer [None]
  - Nasopharyngitis [Recovered/Resolved]
  - Nausea [Not Recovered/Not Resolved]
  - Drug ineffective [None]
  - Road traffic accident [None]
  - Cerebrovascular accident [None]
  - Headache [Not Recovered/Not Resolved]

NARRATIVE: CASE EVENT DATE: 20170802
